FAERS Safety Report 4847097-2 (Version None)
Quarter: 2005Q4

REPORT INFORMATION
  Report Type: 
  Country: None (occurrence: None)
  Receive Date: 20051205
  Receipt Date: 20051121
  Transmission Date: 20060501
  Serious: Yes (Other)
  Sender: FDA-Public Use
  Company Number: 2005S1000336

PATIENT
  Age: 42 Year
  Sex: Female

DRUGS (5)
  1. SORIATANE [Suspect]
     Indication: PUSTULAR PSORIASIS
     Dosage: 10 MG; QD
  2. CYCLOSPORINE [Concomitant]
  3. PREDNISONE [Concomitant]
  4. AUGMENTIN BD [Concomitant]
  5. NSAID'S [Concomitant]

REACTIONS (6)
  - ABORTION INDUCED [None]
  - DRUG EXPOSURE BEFORE PREGNANCY [None]
  - INTRA-UTERINE DEATH [None]
  - PREGNANCY [None]
  - PSORIASIS [None]
  - PYREXIA [None]
